FAERS Safety Report 5338716-5 (Version None)
Quarter: 2007Q2

REPORT INFORMATION
  Report Type: 
  Country: None (occurrence: None)
  Receive Date: 20070530
  Receipt Date: 20070525
  Transmission Date: 20071010
  Serious: Yes (Other)
  Sender: FDA-Public Use
  Company Number: B0470525A

PATIENT
  Age: 48 Year
  Sex: Female

DRUGS (4)
  1. PAXIL [Suspect]
     Indication: DEPRESSION
     Route: 048
     Dates: start: 20070416
  2. LENDORMIN [Concomitant]
     Indication: INSOMNIA
     Route: 048
  3. HUMALOG MIX [Concomitant]
     Route: 058
     Dates: start: 19970101
  4. LANTUS [Concomitant]
     Route: 058

REACTIONS (5)
  - FALL [None]
  - HYPOAESTHESIA [None]
  - LOSS OF CONSCIOUSNESS [None]
  - MUSCLE SPASMS [None]
  - SYNCOPE [None]
